FAERS Safety Report 6667237-2 (Version None)
Quarter: 2010Q2

REPORT INFORMATION
  Report Type: 
  Country: None (occurrence: None)
  Receive Date: 20100405
  Receipt Date: 20100329
  Transmission Date: 20101027
  Serious: Yes (Other)
  Sender: FDA-Public Use
  Company Number: CA-BAYER-201013434BCC

PATIENT
  Age: 51 Year
  Sex: Female

DRUGS (6)
  1. ALEVE (CAPLET) [Suspect]
     Indication: ARTHRITIS
     Dosage: UNIT DOSE: 220 MG
     Route: 048
  2. ALEVE (CAPLET) [Suspect]
     Dosage: UNIT DOSE: 220 MG
     Route: 048
  3. AMITRIPTYLINE HCL [Concomitant]
     Route: 048
  4. PANTOPRAZOLE [Concomitant]
     Route: 048
  5. CYCLOBENZAPRINE [Concomitant]
     Route: 048
  6. IBUPROFEN [Concomitant]
     Indication: MUSCULOSKELETAL PAIN
     Route: 048

REACTIONS (4)
  - BACK PAIN [None]
  - DISCOMFORT [None]
  - DISTURBANCE IN ATTENTION [None]
  - POOR QUALITY SLEEP [None]
